FAERS Safety Report 10373899 (Version 1)
Quarter: 2014Q3

REPORT INFORMATION
  Report Type: Report from Study
  Country: BR (occurrence: BR)
  Receive Date: 20140809
  Receipt Date: 20140809
  Transmission Date: 20150326
  Serious: Yes (Hospitalization)
  Sender: FDA-Public Use
  Company Number: PHHY2014BR097817

PATIENT
  Sex: Female
  Weight: 47 kg

DRUGS (4)
  1. ONBREZ [Suspect]
     Active Substance: INDACATEROL
     Indication: RESPIRATORY DISORDER
     Dosage: 1 DF, QD (AT NIGHT)
     Route: 055
     Dates: end: 20140804
  2. ALENIA                             /01538101/ [Suspect]
     Active Substance: BUDESONIDE\FORMOTEROL FUMARATE
     Indication: RESPIRATORY DISORDER
     Dosage: 1 DF, BID (IN THE MORNING AND AT NIGHT)
     Route: 055
  3. NIFEDIPIN [Concomitant]
     Active Substance: NIFEDIPINE
     Indication: BLOOD PRESSURE ABNORMAL
     Dosage: UNK UKN, UNK
  4. ANCORON [Concomitant]
     Active Substance: AMIODARONE HYDROCHLORIDE
     Indication: CARDIAC DISORDER
     Dosage: UNK UKN, UNK
     Dates: start: 2009

REACTIONS (4)
  - Respiratory tract infection [Recovering/Resolving]
  - Respiratory fume inhalation disorder [Unknown]
  - Respiratory disorder [Unknown]
  - Dyspnoea [Recovering/Resolving]
